FAERS Safety Report 8884989 (Version 1)
Quarter: 2012Q4

REPORT INFORMATION
  Report Type: 
  Country: US (occurrence: US)
  Receive Date: 20121102
  Receipt Date: 20121102
  Transmission Date: 20130627
  Serious: No
  Sender: FDA-Public Use
  Company Number: US-BAYER-2012-114737

PATIENT
  Age: 78 Year
  Sex: Female

DRUGS (4)
  1. ALEVE CAPLET/TABLET,MIDOL EXTENDED RELIEF CAPLET [Suspect]
     Indication: ARTHRITIS
     Dosage: 2 DF, BID
     Route: 048
     Dates: start: 201210
  2. DIURETICS [Concomitant]
  3. LISINOPRIL [Concomitant]
  4. KLOR-CON BRAND POTASSIUM [Concomitant]

REACTIONS (1)
  - Joint swelling [None]
